FAERS Safety Report 15782667 (Version 4)
Quarter: 2019Q2

REPORT INFORMATION
  Report Type: Spontaneous
  Country: US (occurrence: US)
  Receive Date: 20190102
  Receipt Date: 20190607
  Transmission Date: 20190711
  Serious: Yes (Other)
  Sender: FDA-Public Use
  Company Number: US-PFIZER INC-2018534122

PATIENT
  Age: 88 Year
  Sex: Female
  Weight: 68.27 kg

DRUGS (8)
  1. AMLODIPINE BESILATE [Suspect]
     Active Substance: AMLODIPINE BESYLATE
     Indication: MYOCARDIAL INFARCTION
     Dosage: 10 MG, 1X/DAY
     Dates: end: 20181115
  2. METOPROLOL. [Concomitant]
     Active Substance: METOPROLOL
     Dosage: UNK
  3. CALCIUM WITH D3 [Concomitant]
     Indication: SUPPLEMENTATION THERAPY
     Dosage: UNK
  4. AMLODIPINE BESILATE [Interacting]
     Active Substance: AMLODIPINE BESYLATE
     Indication: HYPERTENSION
     Dosage: 5 MG, DAILY
  5. NOCTIVA [Interacting]
     Active Substance: DESMOPRESSIN ACETATE
     Dosage: UNK (1 SPRAY IN EACH NOSTRIL)
     Route: 045
     Dates: start: 20190111
  6. COQ10 + D3 [Concomitant]
     Indication: SUPPLEMENTATION THERAPY
     Dosage: UNK
  7. NOCTIVA [Interacting]
     Active Substance: DESMOPRESSIN ACETATE
     Dosage: 1.66 UG, 1X/DAY
     Route: 045
     Dates: start: 201811, end: 20181116
  8. NOCTIVA [Interacting]
     Active Substance: DESMOPRESSIN ACETATE
     Indication: NOCTURIA
     Dosage: 0.83 UG, 1X/DAY
     Route: 045
     Dates: start: 201810, end: 201811

REACTIONS (5)
  - Blood pressure increased [Unknown]
  - Urine output decreased [Unknown]
  - Drug ineffective [Not Recovered/Not Resolved]
  - Drug interaction [Not Recovered/Not Resolved]
  - Blood pressure systolic decreased [Unknown]

NARRATIVE: CASE EVENT DATE: 201810
